FAERS Safety Report 7357915-4 (Version None)
Quarter: 2011Q1

REPORT INFORMATION
  Report Type: 
  Country: None (occurrence: None)
  Receive Date: 20110317
  Receipt Date: 20110308
  Transmission Date: 20110831
  Serious: Yes (Hospitalization)
  Sender: FDA-Public Use
  Company Number: US-SANOFI-AVENTIS-2011SA004192

PATIENT
  Age: 75 Year
  Sex: Female
  Weight: 73.64 kg

DRUGS (4)
  1. MULTAQ [Suspect]
     Indication: ATRIAL FIBRILLATION
     Route: 048
     Dates: start: 20100101, end: 20110220
  2. ASPIRIN [Concomitant]
  3. MULTAQ [Suspect]
     Route: 048
     Dates: start: 20100101, end: 20110220
  4. AMIODARONE [Concomitant]

REACTIONS (6)
  - PAIN IN EXTREMITY [None]
  - INCORRECT DOSE ADMINISTERED [None]
  - ASTHENIA [None]
  - ATRIAL FIBRILLATION [None]
  - PAIN [None]
  - MUSCLE SPASMS [None]
